FAERS Safety Report 8959895 (Version 1)
Quarter: 2012Q4

REPORT INFORMATION
  Report Type: 
  Country: US (occurrence: US)
  Receive Date: 20121212
  Receipt Date: 20121212
  Transmission Date: 20130627
  Serious: Yes (Other)
  Sender: FDA-Public Use
  Company Number: US-ROXANE LABORATORIES, INC.-2012-RO-02535RO

PATIENT
  Sex: Female
  Weight: 77 kg

DRUGS (3)
  1. PREDNISONE [Suspect]
     Indication: POLYMYALGIA RHEUMATICA
  2. PROVIGIL [Suspect]
     Indication: NARCOLEPSY
     Route: 048
     Dates: start: 2005
  3. PERCOCET [Concomitant]

REACTIONS (1)
  - Spinal fracture [Unknown]
